FAERS Safety Report 12679394 (Version 1)
Quarter: 2016Q3

REPORT INFORMATION
  Report Type: Spontaneous
  Country: US (occurrence: None)
  Receive Date: 20160823
  Receipt Date: 20160823
  Transmission Date: 20161109
  Serious: Yes (Hospitalization)
  Sender: FDA-Public Use
  Company Number: None

PATIENT
  Age: 65 Year
  Sex: Male

DRUGS (19)
  1. CARVEDILOL. [Concomitant]
     Active Substance: CARVEDILOL
  2. HYDRALAZINE [Concomitant]
     Active Substance: HYDRALAZINE HYDROCHLORIDE
  3. ACETAMINOPHEN. [Concomitant]
     Active Substance: ACETAMINOPHEN
  4. DOCUSATE [Concomitant]
     Active Substance: DOCUSATE
  5. LAMIVUDINE. [Concomitant]
     Active Substance: LAMIVUDINE
  6. NYSTATIN ORAL LIQUID [Concomitant]
     Active Substance: NYSTATIN
  7. TACROLIMUS. [Concomitant]
     Active Substance: TACROLIMUS
  8. SULFAMETHOXAZOLE/TRIMETHOPRIM [Concomitant]
     Active Substance: SULFAMETHOXAZOLE\TRIMETHOPRIM
  9. ACYCLOVIR. [Concomitant]
     Active Substance: ACYCLOVIR
  10. INSULIN ASPART [Concomitant]
     Active Substance: INSULIN ASPART
  11. MULTIVITAMIN [Concomitant]
     Active Substance: VITAMINS
  12. CLOPIDOGREL [Concomitant]
     Active Substance: CLOPIDOGREL BISULFATE
  13. NIFEDIPINE. [Concomitant]
     Active Substance: NIFEDIPINE
  14. RANITIDINE. [Concomitant]
     Active Substance: RANITIDINE
  15. ASPIRIN. [Concomitant]
     Active Substance: ASPIRIN
  16. AZATHIOPRINE. [Concomitant]
     Active Substance: AZATHIOPRINE
  17. PREDNISONE. [Concomitant]
     Active Substance: PREDNISONE
  18. INDOMETHACIN. [Suspect]
     Active Substance: INDOMETHACIN
     Indication: GOUT
     Route: 048
     Dates: start: 20160716, end: 20160721
  19. OXYCODONE [Concomitant]
     Active Substance: OXYCODONE

REACTIONS (3)
  - Acute kidney injury [None]
  - Drug interaction [None]
  - Nephropathy toxic [None]

NARRATIVE: CASE EVENT DATE: 20160721
